FAERS Safety Report 5201477-4 (Version None)
Quarter: 2006Q4

REPORT INFORMATION
  Report Type: 
  Country: None (occurrence: None)
  Receive Date: 20061004
  Receipt Date: 20060615
  Transmission Date: 20070319
  Serious: No
  Sender: FDA-Public Use
  Company Number: US200606003641

PATIENT
  Age: 51 Year
  Sex: Female

DRUGS (3)
  1. ALIMTA [Suspect]
     Indication: NEOPLASM MALIGNANT
     Route: 065
     Dates: start: 20050901
  2. FOLIC ACID [Concomitant]
  3. VITAMIN B12 [Concomitant]

REACTIONS (5)
  - EYE SWELLING [None]
  - LIMB DISCOMFORT [None]
  - MUSCULOSKELETAL DISCOMFORT [None]
  - OEDEMA PERIPHERAL [None]
  - SWELLING FACE [None]
